FAERS Safety Report 4509000-4 (Version None)
Quarter: 2004Q4

REPORT INFORMATION
  Report Type: 
  Country: None (occurrence: None)
  Receive Date: 20041122
  Receipt Date: 20041122
  Transmission Date: 20050328
  Serious: Yes (Hospitalization)
  Sender: FDA-Public Use
  Company Number: None

PATIENT
  Age: 52 Year
  Sex: Female

DRUGS (10)
  1. EPINEPHRINE [Suspect]
     Indication: ANGIONEUROTIC OEDEMA
     Dosage: RESPIRATOR
     Route: 055
     Dates: start: 20040701, end: 20040702
  2. COZAAR [Concomitant]
  3. PROGRAF [Concomitant]
  4. FOSAMAX [Concomitant]
  5. FAMOTIDINE [Concomitant]
  6. ASPIRIN [Concomitant]
  7. LOPRESSOR [Concomitant]
  8. LANTUS [Concomitant]
  9. COMBIVENT [Concomitant]
  10. ALBUTEROL [Concomitant]

REACTIONS (1)
  - RENAL FAILURE ACUTE [None]
